FAERS Safety Report 19305178 (Version 2)
Quarter: 2021Q2

REPORT INFORMATION
  Report Type: Report from Study
  Country: None (occurrence: US)
  Receive Date: 20210525
  Receipt Date: 20210625
  Transmission Date: 20210717
  Serious: Yes (Other)
  Sender: FDA-Public Use
  Company Number: US-ABBVIE-21K-163-3919707-00

PATIENT
  Sex: Female
  Weight: 51.76 kg

DRUGS (4)
  1. VITAMINS [Concomitant]
     Active Substance: VITAMINS
     Indication: SUPPLEMENTATION THERAPY
  2. CRESTOR [Concomitant]
     Active Substance: ROSUVASTATIN CALCIUM
     Indication: BLOOD CHOLESTEROL INCREASED
  3. HUMIRA [Suspect]
     Active Substance: ADALIMUMAB
     Indication: CROHN^S DISEASE
     Route: 058
     Dates: start: 20201220
  4. COVID?19 VACCINE [Concomitant]
     Indication: COVID-19 IMMUNISATION
     Dosage: MANUFACTURER: JOHNSON AND JOHNSON
     Route: 030
     Dates: start: 20210305, end: 20210305

REACTIONS (4)
  - Haemorrhoids [Recovering/Resolving]
  - Constipation [Recovered/Resolved]
  - Crohn^s disease [Unknown]
  - Discomfort [Recovering/Resolving]
